FAERS Safety Report 11293484 (Version 1)
Quarter: 2015Q3

REPORT INFORMATION
  Report Type: Report from Study
  Country: CO (occurrence: CO)
  Receive Date: 20150722
  Receipt Date: 20150722
  Transmission Date: 20151125
  Serious: Yes (Other)
  Sender: FDA-Public Use
  Company Number: CO-EMD SERONO-8034597

PATIENT
  Age: 13 Year
  Sex: Female
  Weight: 45 kg

DRUGS (1)
  1. SAIZEN [Suspect]
     Active Substance: SOMATROPIN
     Indication: GROWTH RETARDATION
     Route: 058
     Dates: start: 201504

REACTIONS (2)
  - Clavicle fracture [Recovering/Resolving]
  - Therapeutic response decreased [Not Recovered/Not Resolved]

NARRATIVE: CASE EVENT DATE: 201505
